FAERS Safety Report 6716218-9 (Version None)
Quarter: 2010Q2

REPORT INFORMATION
  Report Type: 
  Country: None (occurrence: None)
  Receive Date: 20100506
  Receipt Date: 20100506
  Transmission Date: 20101027
  Serious: Yes (Other)
  Sender: FDA-Public Use
  Company Number: None

PATIENT
  Age: 31 Year
  Sex: Female
  Weight: 92.9874 kg

DRUGS (2)
  1. OMEPRAZOLE [Suspect]
     Indication: GASTRIC DISORDER
     Dates: start: 20100415, end: 20100503
  2. OMEPRAZOLE [Suspect]
     Indication: GASTRIC ULCER
     Dates: start: 20100415, end: 20100503

REACTIONS (8)
  - ABDOMINAL DISTENSION [None]
  - ABDOMINAL PAIN [None]
  - DRY THROAT [None]
  - DYSPHONIA [None]
  - JOINT SWELLING [None]
  - OROPHARYNGEAL PAIN [None]
  - WEIGHT DECREASED [None]
  - WEIGHT INCREASED [None]
